FAERS Safety Report 5146352-9 (Version None)
Quarter: 2006Q4

REPORT INFORMATION
  Report Type: 
  Country: None (occurrence: None)
  Receive Date: 20061102
  Receipt Date: 20060907
  Transmission Date: 20070319
  Serious: Yes (Death, Other)
  Sender: FDA-Public Use
  Company Number: 2006119844

PATIENT
  Sex: 0

DRUGS (3)
  1. CELEBREX [Suspect]
     Dates: start: 19990330, end: 20020928
  2. BEXTRA [Suspect]
     Dates: start: 20020426, end: 20040903
  3. VIOXX [Suspect]
     Dosage: ORAL
     Route: 048
     Dates: start: 20020210, end: 20020801

REACTIONS (1)
  - MYOCARDIAL INFARCTION [None]
